FAERS Safety Report 4469120-X (Version None)
Quarter: 2004Q4

REPORT INFORMATION
  Report Type: 
  Country: None (occurrence: None)
  Receive Date: 20041005
  Receipt Date: 20041005
  Transmission Date: 20050328
  Serious: Yes (Hospitalization)
  Sender: FDA-Public Use
  Company Number: None

PATIENT
  Age: 50 Year
  Sex: Male
  Weight: 80 kg

DRUGS (3)
  1. CISPLATIN [Suspect]
     Indication: CARCINOMA
     Dosage: 200 MG IV , 195 MG IV
     Route: 042
     Dates: start: 20040721
  2. CISPLATIN [Suspect]
     Indication: CARCINOMA
     Dosage: 200 MG IV , 195 MG IV
     Route: 042
     Dates: start: 20040811
  3. RADIATION THERAPY [Concomitant]

REACTIONS (6)
  - CLOSTRIDIUM COLITIS [None]
  - DYSPHAGIA [None]
  - ELECTROLYTE IMBALANCE [None]
  - ODYNOPHAGIA [None]
  - ORAL CANDIDIASIS [None]
  - RENAL FAILURE ACUTE [None]
